FAERS Safety Report 4488974-4 (Version None)
Quarter: 2004Q4

REPORT INFORMATION
  Report Type: 
  Country: None (occurrence: None)
  Receive Date: 20041027
  Receipt Date: 20041014
  Transmission Date: 20050328
  Serious: Yes (Other)
  Sender: FDA-Public Use
  Company Number: 2004078227

PATIENT
  Age: 51 Year
  Sex: Male
  Weight: 83.4619 kg

DRUGS (14)
  1. BENGAY PAIN RELIEVING PATCH (MENTHOL) [Suspect]
     Indication: ARTHRALGIA
     Dosage: 1 PATCH ONCE, TOPICAL
     Route: 061
     Dates: start: 20041001, end: 20041001
  2. OXYGEN (OXYGEN) [Concomitant]
  3. IBUPROFEN [Concomitant]
  4. HYDROMORPHONE HCL [Concomitant]
  5. HYDROCHLOROTHIAZIDE [Concomitant]
  6. CYCLOBENZAPRINE HCL [Concomitant]
  7. PANTOPRAZOLE (PANTOPRAZOLE) [Concomitant]
  8. FINASTERIDE [Concomitant]
  9. PHENAZOPYRIDINE (PHENAZOPYRIDINE) [Concomitant]
  10. HYOSCYAMINE (HYOSCYAMINE) [Concomitant]
  11. TEGASEROD (TEGASEROD) [Concomitant]
  12. SALBUTAMOL (SALBUTAMOL) [Concomitant]
  13. FLUTICASONE PROPIONATE [Concomitant]
  14. ACETAMINOPHEN [Concomitant]

REACTIONS (3)
  - ASTHMA [None]
  - CONDITION AGGRAVATED [None]
  - REACTION TO DRUG EXCIPIENT [None]
